FAERS Safety Report 9219267 (Version 1)
Quarter: 2013Q2

REPORT INFORMATION
  Report Type: Report from Study
  Country: JP (occurrence: JP)
  Receive Date: 20130409
  Receipt Date: 20130409
  Transmission Date: 20140414
  Serious: Yes (Death)
  Sender: FDA-Public Use
  Company Number: JP-ASTELLAS-2013JP004725

PATIENT
  Age: 84 Year
  Sex: Male
  Weight: 39.2 kg

DRUGS (3)
  1. MIRABEGRON [Suspect]
     Indication: HYPERTONIC BLADDER
     Dosage: 25 MG, UID/QD
     Route: 048
     Dates: start: 20121226, end: 20130119
  2. URITOS [Concomitant]
     Indication: HYPERTONIC BLADDER
     Dosage: 0.1 MG, UID/QD
     Route: 048
     Dates: start: 20121217, end: 20121225
  3. HARNAL [Concomitant]
     Indication: BENIGN PROSTATIC HYPERPLASIA
     Dosage: 0.1 MG, UNKNOWN/D
     Route: 048
     Dates: end: 20130119

REACTIONS (1)
  - Pneumonia [Fatal]
